FAERS Safety Report 23153896 (Version 3)
Quarter: 2023Q4

REPORT INFORMATION
  Report Type: Report from Study
  Country: AT (occurrence: AT)
  Receive Date: 20231107
  Receipt Date: 20231218
  Transmission Date: 20240110
  Serious: Yes (Other)
  Sender: FDA-Public Use
  Company Number: AT-ABBVIE-5390845

PATIENT
  Age: 83 Year
  Sex: Male
  Weight: 73 kg

DRUGS (36)
  1. AZACITIDINE [Suspect]
     Active Substance: AZACITIDINE
     Indication: Acute myeloid leukaemia
     Dosage: 152.88 MILLIGRAM (FREQUENCY TEXT: 0.001 ML/H)
     Route: 042
     Dates: start: 20230828, end: 20231009
  2. AZACITIDINE [Suspect]
     Active Substance: AZACITIDINE
     Dosage: 71 MILLIGRAM (FREQUENCY TEXT: 0.001 ML/H, CONTINUOUS END DATE- 2023)
     Route: 042
     Dates: start: 20231010, end: 20231123
  3. VENETOCLAX [Suspect]
     Active Substance: VENETOCLAX
     Indication: Acute myeloid leukaemia
     Dosage: 100 MILLIGRAM, QD, 0-0-1-0
     Route: 048
     Dates: start: 20230828, end: 20230828
  4. VENETOCLAX [Suspect]
     Active Substance: VENETOCLAX
     Dosage: 200 MILLIGRAM, UP TITRATION
     Route: 048
     Dates: start: 20230829, end: 20230829
  5. VENETOCLAX [Suspect]
     Active Substance: VENETOCLAX
     Dosage: 100 MILLIGRAM, UP TITRATION
     Route: 048
     Dates: start: 20230904, end: 20230906
  6. VENETOCLAX [Suspect]
     Active Substance: VENETOCLAX
     Dosage: 200 MILLIGRAM, STANDARD DOSING
     Route: 048
     Dates: start: 20230907, end: 20230916
  7. VENETOCLAX [Suspect]
     Active Substance: VENETOCLAX
     Dosage: 100 MILLIGRAM
     Route: 048
     Dates: start: 20231011, end: 20231011
  8. VENETOCLAX [Suspect]
     Active Substance: VENETOCLAX
     Dosage: 200 MILLIGRAM
     Route: 048
     Dates: start: 20231012, end: 20231023
  9. VENETOCLAX [Suspect]
     Active Substance: VENETOCLAX
     Dosage: 200 MILLIGRAM
     Route: 048
     Dates: start: 20231123
  10. AMPHOTERICIN B [Concomitant]
     Active Substance: AMPHOTERICIN B
     Indication: Supportive care
     Dosage: UNK UNK, QD
     Route: 065
     Dates: start: 20230901
  11. GLYCOSAMINOGLYCANS [Concomitant]
     Active Substance: GLYCOSAMINOGLYCANS
     Indication: Supportive care
     Dosage: UNK
     Route: 065
     Dates: start: 20230908
  12. GLYCOSAMINOGLYCANS [Concomitant]
     Active Substance: GLYCOSAMINOGLYCANS
     Dosage: UNK
     Route: 065
     Dates: start: 20230908
  13. AMLODIPINE BESYLATE [Concomitant]
     Active Substance: AMLODIPINE BESYLATE
     Indication: Product used for unknown indication
     Dosage: 5 MILLIGRAM, QD
     Route: 048
     Dates: start: 20230905
  14. PIPERACILLIN [Concomitant]
     Active Substance: PIPERACILLIN
     Indication: Product used for unknown indication
     Dosage: UNK, 4G/0.5GPIPERACILLIN/TAZOBACTAM KABI
     Route: 042
     Dates: start: 20230821
  15. CHOLECALCIFEROL [Concomitant]
     Active Substance: CHOLECALCIFEROL
     Indication: Product used for unknown indication
     Dosage: FREQUENCY TEXT: 1-0-0-0, 1 DROP DAILYDOSE-12.5
     Route: 048
     Dates: start: 20230821
  16. CHOLECALCIFEROL [Concomitant]
     Active Substance: CHOLECALCIFEROL
     Dosage: UNK UNK, MONTHLY
     Route: 048
  17. CHOLECALCIFEROL [Concomitant]
     Active Substance: CHOLECALCIFEROL
     Dosage: 12.5 MILLIGRAM
     Route: 048
     Dates: start: 20230821
  18. AMLODIPINE AND VALSARTAN [Concomitant]
     Active Substance: AMLODIPINE\VALSARTAN
     Indication: Product used for unknown indication
     Dosage: 5 MILLIGRAM, QD
     Route: 048
     Dates: start: 20230905
  19. HAEMOCOMPLETTAN P [Concomitant]
     Active Substance: FIBRINOGEN HUMAN
     Indication: Product used for unknown indication
     Dosage: 1000 INTERNATIONAL UNIT, PRN
     Route: 042
     Dates: start: 20230829
  20. RILMENIDINE [Concomitant]
     Active Substance: RILMENIDINE
     Indication: Product used for unknown indication
     Dosage: 1000 MILLIGRAM, QD
     Route: 048
     Dates: start: 20230831
  21. ASPIRIN [Concomitant]
     Active Substance: ASPIRIN
     Indication: Product used for unknown indication
     Dosage: 100 MILLIGRAM, QD, FREQUENCY TEXT: 0-1-0-0
     Route: 048
     Dates: start: 20230821
  22. EXFORGE [Concomitant]
     Active Substance: AMLODIPINE BESYLATE\VALSARTAN
     Indication: Product used for unknown indication
     Dosage: 5 MG/80 MG
     Route: 048
     Dates: start: 20230821
  23. EXFORGE [Concomitant]
     Active Substance: AMLODIPINE BESYLATE\VALSARTAN
     Dosage: 5 MG/80 MG
     Route: 048
     Dates: start: 20230821
  24. EXFORGE [Concomitant]
     Active Substance: AMLODIPINE BESYLATE\VALSARTAN
     Dosage: 5 MG/80 MG
     Route: 048
     Dates: start: 20230821
  25. SODIUM CHLORIDE [Concomitant]
     Active Substance: SODIUM CHLORIDE
     Indication: Pain
     Dosage: 100ML PRN,NACL 0.9% AS REQUIRED
     Route: 042
     Dates: start: 20230821
  26. SODIUM CHLORIDE [Concomitant]
     Active Substance: SODIUM CHLORIDE
     Indication: Body temperature
  27. LEVOFLOXACIN [Concomitant]
     Active Substance: LEVOFLOXACIN
     Indication: Product used for unknown indication
     Dosage: 250 MILLIGRAM, QD
     Route: 042
     Dates: start: 20230823
  28. GLANDOMED [Concomitant]
     Indication: Supportive care
     Dosage: 10 MILLILITER, PRN
     Route: 065
     Dates: start: 20230901
  29. MEROPENEM [Concomitant]
     Active Substance: MEROPENEM
     Indication: Product used for unknown indication
     Dosage: 1000 MILLIGRAM, 0.33 DAY
     Route: 042
     Dates: start: 20230830
  30. Novalgin [Concomitant]
     Indication: Product used for unknown indication
     Dosage: 500 MILLIGRAM, Q6H
     Route: 048
     Dates: start: 20230821
  31. ONDANSETRON [Concomitant]
     Active Substance: ONDANSETRON
     Indication: Nausea
     Dosage: AS REQUIRED, MAX 2X DAILY100ML
     Route: 042
     Dates: start: 20230821
  32. BERIPLEX HS [Concomitant]
     Active Substance: COAGULATION FACTOR IX HUMAN\COAGULATION FACTOR VII HUMAN\COAGULATION FACTOR X HUMAN\PROTEIN C\PROTEI
     Indication: Product used for unknown indication
     Dosage: 1000 INTERNATIONAL UNIT
     Route: 042
     Dates: start: 20230829
  33. FILGRASTIM [Concomitant]
     Active Substance: FILGRASTIM
     Indication: Supportive care
     Dosage: 30 INTERNATIONAL UNIT, QD
     Route: 065
     Dates: start: 20230921
  34. METAMIZOL [Concomitant]
     Active Substance: METAMIZOLE SODIUM
     Indication: Body temperature
     Dosage: 1000 MILLIGRAM, PRN
     Route: 042
     Dates: start: 20230821
  35. METAMIZOL [Concomitant]
     Active Substance: METAMIZOLE SODIUM
     Indication: Pain
  36. PIPERACILLIN SODIUM\TAZOBACTAM SODIUM [Concomitant]
     Active Substance: PIPERACILLIN SODIUM\TAZOBACTAM SODIUM
     Indication: Product used for unknown indication
     Dosage: 4G/0.5GPIPERACILLIN/TAZOBACTAM KABI + 100ML NACL 0.9%
     Route: 042
     Dates: start: 20230821

REACTIONS (5)
  - Thrombocytopenia [Not Recovered/Not Resolved]
  - Anaemia [Recovered/Resolved]
  - Tumour lysis syndrome [Recovered/Resolved]
  - Pyrexia [Recovered/Resolved]
  - Off label use [Unknown]

NARRATIVE: CASE EVENT DATE: 20230829
